FAERS Safety Report 7353961-5 (Version None)
Quarter: 2011Q1

REPORT INFORMATION
  Report Type: 
  Country: None (occurrence: None)
  Receive Date: 20110315
  Receipt Date: 20110301
  Transmission Date: 20110831
  Serious: Yes (Hospitalization)
  Sender: FDA-Public Use
  Company Number: PHHY2010US82741

PATIENT
  Sex: Female

DRUGS (2)
  1. LASIX [Concomitant]
  2. AFINITOR [Suspect]
     Indication: RENAL CANCER METASTATIC
     Dosage: 10 MG/ DAILY
     Route: 048
     Dates: start: 20100525, end: 20100612

REACTIONS (1)
  - BLOOD POTASSIUM DECREASED [None]
